FAERS Safety Report 8060436-7 (Version None)
Quarter: 2012Q1

REPORT INFORMATION
  Report Type: 
  Country: None (occurrence: None)
  Receive Date: 20120120
  Receipt Date: 20120109
  Transmission Date: 20120608
  Serious: Yes (Hospitalization)
  Sender: FDA-Public Use
  Company Number: FR-GLAXOSMITHKLINE-B0755048A

PATIENT
  Sex: Male

DRUGS (16)
  1. VALACYCLOVIR HYDROCHLORIDE [Suspect]
     Indication: ANTIVIRAL PROPHYLAXIS
     Dosage: 500MG ALTERNATE DAYS
     Route: 048
     Dates: start: 20110818, end: 20110922
  2. SOLIRIS [Suspect]
     Indication: HAEMOLYTIC URAEMIC SYNDROME
     Route: 042
     Dates: start: 20110801, end: 20110915
  3. PHENOXYMETHYL PENICILLIN [Suspect]
     Indication: PRODUCT USED FOR UNKNOWN INDICATION
     Dosage: 1IU6 TWICE PER DAY
     Route: 048
     Dates: start: 20110801, end: 20110922
  4. EUPRESSYL [Suspect]
     Indication: PRODUCT USED FOR UNKNOWN INDICATION
     Dosage: 60MG THREE TIMES PER DAY
     Route: 048
     Dates: end: 20110922
  5. FOLIC ACID [Concomitant]
  6. ESIDRIX [Suspect]
     Indication: PRODUCT USED FOR UNKNOWN INDICATION
     Dosage: 25MG PER DAY
     Route: 048
     Dates: end: 20110922
  7. NEBIVOLOL [Concomitant]
  8. LEXOMIL [Concomitant]
  9. NEBIVOLOL [Concomitant]
  10. HYPERIUM [Suspect]
     Indication: PRODUCT USED FOR UNKNOWN INDICATION
     Dosage: 1MG TWICE PER DAY
     Route: 048
     Dates: end: 20110922
  11. LASIX [Concomitant]
  12. PANTOPRAZOLE [Concomitant]
  13. PANTOPRAZOLE [Concomitant]
  14. FOLIC ACID [Concomitant]
  15. LASIX [Concomitant]
  16. LEXOMIL [Concomitant]

REACTIONS (2)
  - RASH MACULO-PAPULAR [None]
  - PRURITUS [None]
